FAERS Safety Report 13673220 (Version 1)
Quarter: 2017Q2

REPORT INFORMATION
  Report Type: Spontaneous
  Country: SE (occurrence: SE)
  Receive Date: 20170621
  Receipt Date: 20170621
  Transmission Date: 20170830
  Serious: Yes (Other)
  Sender: FDA-Public Use
  Company Number: SE-CELLTRION HEALTHCARE HUNGARY KFT-2017SE008039

PATIENT

DRUGS (3)
  1. AZATHIOPRIN [Concomitant]
     Active Substance: AZATHIOPRINE
     Dosage: 150 MG, DAILY
     Dates: start: 2013
  2. PENTASA [Concomitant]
     Active Substance: MESALAMINE
     Dosage: 2 G, UNK
     Dates: start: 2012
  3. INFLECTRA [Suspect]
     Active Substance: INFLIXIMAB-DYYB
     Indication: PRODUCT USED FOR UNKNOWN INDICATION
     Dosage: 175 MG, UNK
     Route: 065
     Dates: start: 20170306, end: 20170306

REACTIONS (7)
  - Chest discomfort [Recovered/Resolved]
  - Dizziness [Recovered/Resolved]
  - Blood pressure decreased [Recovered/Resolved]
  - Hypersensitivity [Recovered/Resolved]
  - Pallor [Recovered/Resolved]
  - Sensation of foreign body [Recovered/Resolved]
  - Cough [Unknown]

NARRATIVE: CASE EVENT DATE: 20170306
